FAERS Safety Report 10539513 (Version 1)
Quarter: 2014Q4

REPORT INFORMATION
  Report Type: Spontaneous
  Country: US (occurrence: US)
  Receive Date: 20141023
  Receipt Date: 20141023
  Transmission Date: 20150529
  Serious: No
  Sender: FDA-Public Use
  Company Number: US-ALLERGAN-1418041US

PATIENT
  Age: 67 Year
  Sex: Male

DRUGS (2)
  1. COMBIGAN[R] [Suspect]
     Active Substance: BRIMONIDINE TARTRATE\TIMOLOL MALEATE
     Indication: INTRAOCULAR PRESSURE INCREASED
     Dosage: 1 GTT, BID
     Route: 047
  2. BROMFENAC [Concomitant]
     Active Substance: BROMFENAC\BROMFENAC SODIUM
     Dosage: UNK
     Route: 047

REACTIONS (3)
  - Erythema [Recovered/Resolved]
  - Eye swelling [Recovered/Resolved]
  - Instillation site pain [Recovered/Resolved]
